FAERS Safety Report 18270568 (Version 2)
Quarter: 2020Q3

REPORT INFORMATION
  Report Type: Spontaneous
  Country: US (occurrence: US)
  Receive Date: 20200915
  Receipt Date: 20200925
  Transmission Date: 20201103
  Serious: Yes (Other)
  Sender: FDA-Public Use
  Company Number: US-JNJFOC-A-US2020-200556

PATIENT
  Age: 53 Year
  Sex: Female
  Weight: 54.42 kg

DRUGS (3)
  1. VELETRI [Suspect]
     Active Substance: EPOPROSTENOL
     Indication: PULMONARY ARTERIAL HYPERTENSION
     Dosage: 40 NG/KG, PER MIN
     Route: 042
  2. REVATIO [Concomitant]
     Active Substance: SILDENAFIL CITRATE
  3. OPSUMIT [Concomitant]
     Active Substance: MACITENTAN

REACTIONS (13)
  - Pain [Unknown]
  - Product dose omission issue [Recovered/Resolved]
  - Flushing [Not Recovered/Not Resolved]
  - Skin irritation [Unknown]
  - Headache [Unknown]
  - Dermatitis contact [Not Recovered/Not Resolved]
  - Device alarm issue [Unknown]
  - Catheter management [Unknown]
  - Ankle fracture [Recovering/Resolving]
  - Device dislocation [Unknown]
  - Pain in extremity [Not Recovered/Not Resolved]
  - Catheter site irritation [Not Recovered/Not Resolved]
  - Complication associated with device [Unknown]

NARRATIVE: CASE EVENT DATE: 201910
